FAERS Safety Report 8152570-8 (Version None)
Quarter: 2012Q1

REPORT INFORMATION
  Report Type: 
  Country: None (occurrence: None)
  Receive Date: 20120221
  Receipt Date: 20120208
  Transmission Date: 20120608
  Serious: Yes (Congenital Anomaly)
  Sender: FDA-Public Use
  Company Number: DE-TEVA-321687GER

PATIENT

DRUGS (2)
  1. VENLAFAXINE [Suspect]
     Route: 064
  2. FOLSAEURE RATHIOPHARM [Concomitant]
     Route: 064

REACTIONS (3)
  - CLEFT LIP AND PALATE [None]
  - ATRIOVENTRICULAR SEPTAL DEFECT [None]
  - TRISOMY 21 [None]
